FAERS Safety Report 12281397 (Version 4)
Quarter: 2016Q2

REPORT INFORMATION
  Report Type: Report from Study
  Country: BR (occurrence: BR)
  Receive Date: 20160419
  Receipt Date: 20160624
  Transmission Date: 20160815
  Serious: Yes (Hospitalization, Other)
  Sender: FDA-Public Use
  Company Number: PHHY2015BR070121

PATIENT
  Age: 80 Year
  Sex: Female
  Weight: 52 kg

DRUGS (3)
  1. MODURETIC 5-50 [Concomitant]
     Active Substance: AMILORIDE HYDROCHLORIDE\HYDROCHLOROTHIAZIDE
     Indication: FLUID RETENTION
     Dosage: 2.5 MG, QD
     Route: 048
  2. ACLASTA [Suspect]
     Active Substance: ZOLEDRONIC ACID
     Indication: OSTEOPOROSIS
     Dosage: 5 MG, Q12MO
     Route: 042
     Dates: start: 201402
  3. PROPANOLOL [Concomitant]
     Active Substance: PROPRANOLOL HYDROCHLORIDE
     Indication: PRODUCT USED FOR UNKNOWN INDICATION
     Dosage: 40 MG, BID
     Route: 048

REACTIONS (16)
  - Tendonitis [Recovering/Resolving]
  - Bursitis [Recovering/Resolving]
  - Incorrect drug administration rate [Unknown]
  - Blood pressure increased [Not Recovered/Not Resolved]
  - Cardiac disorder [Unknown]
  - Dizziness [Unknown]
  - Weight decreased [Unknown]
  - Haemorrhage [Unknown]
  - Injury [Not Recovered/Not Resolved]
  - Asthenia [Unknown]
  - Gait disturbance [Unknown]
  - Weight increased [Not Recovered/Not Resolved]
  - Fall [Unknown]
  - Emotional disorder [Unknown]
  - Malaise [Unknown]
  - Pain in extremity [Not Recovered/Not Resolved]

NARRATIVE: CASE EVENT DATE: 20160404
